FAERS Safety Report 6465421-4 (Version None)
Quarter: 2009Q4

REPORT INFORMATION
  Report Type: 
  Country: None (occurrence: None)
  Receive Date: 20091201
  Receipt Date: 20090324
  Transmission Date: 20100525
  Serious: No
  Sender: FDA-Public Use
  Company Number: US-AMGEN-KDL304722

PATIENT
  Sex: Female

DRUGS (4)
  1. ENBREL [Suspect]
     Indication: RHEUMATOID ARTHRITIS
     Route: 058
     Dates: start: 20080528
  2. CYMBALTA [Concomitant]
     Dates: start: 20080806
  3. RECOMBINANT HUMAN GROWTH HORMONE [Concomitant]
  4. ZOLEDRONIC ACID [Concomitant]

REACTIONS (8)
  - CONTUSION [None]
  - INJECTION SITE DISCOLOURATION [None]
  - INJECTION SITE ERYTHEMA [None]
  - INJECTION SITE HAEMATOMA [None]
  - INJECTION SITE INDURATION [None]
  - INJECTION SITE PRURITUS [None]
  - INJECTION SITE URTICARIA [None]
  - PNEUMONIA PRIMARY ATYPICAL [None]
